FAERS Safety Report 5098678-5 (Version None)
Quarter: 2006Q3

REPORT INFORMATION
  Report Type: 
  Country: None (occurrence: None)
  Receive Date: 20060905
  Receipt Date: 20060818
  Transmission Date: 20061208
  Serious: Yes (Hospitalization, Other)
  Sender: FDA-Public Use
  Company Number: DSA_28611_2006

PATIENT
  Age: 69 Year
  Sex: Female

DRUGS (4)
  1. CARDIZEM LA [Suspect]
     Indication: HYPERTENSION
     Dosage: 180 MG
  2. LASIX [Concomitant]
  3. AVAPRO [Concomitant]
  4. CALCIUM GLUCONATE [Concomitant]

REACTIONS (4)
  - AORTIC ANEURYSM [None]
  - INTRACRANIAL ANEURYSM [None]
  - MALAISE [None]
  - PARATHYROID DISORDER [None]
